FAERS Safety Report 6373764-8 (Version None)
Quarter: 2009Q3

REPORT INFORMATION
  Report Type: 
  Country: None (occurrence: None)
  Receive Date: 20090924
  Receipt Date: 20090709
  Transmission Date: 20100115
  Serious: Yes (Other)
  Sender: FDA-Public Use
  Company Number: US-ASTRAZENECA-2009UW13439

PATIENT
  Age: 47 Year
  Sex: Female
  Weight: 97.5 kg

DRUGS (6)
  1. SEROQUEL [Suspect]
     Indication: BIPOLAR DISORDER
     Route: 048
     Dates: start: 19970101
  2. SEROQUEL [Suspect]
     Indication: SCHIZOPHRENIA
     Route: 048
     Dates: start: 19970101
  3. ZYPREXA [Concomitant]
     Dates: start: 20050101, end: 20060101
  4. HALDOL [Concomitant]
     Dates: start: 20050101
  5. STELAZINE [Concomitant]
     Dates: start: 20050101
  6. BENZATROPINE [Concomitant]
     Dates: start: 20060101

REACTIONS (5)
  - CONVULSION [None]
  - DIABETES MELLITUS [None]
  - DIABETIC COMA [None]
  - OBESITY [None]
  - TARDIVE DYSKINESIA [None]
